FAERS Safety Report 25665493 (Version 1)
Quarter: 2025Q3

REPORT INFORMATION
  Report Type: Spontaneous
  Country: US (occurrence: US)
  Receive Date: 20250811
  Receipt Date: 20250811
  Transmission Date: 20251020
  Serious: No
  Sender: MYLAN
  Company Number: US-MYLANLABS-2025M1065949

PATIENT
  Sex: Female
  Weight: 83.46 kg

DRUGS (4)
  1. CLONIDINE [Suspect]
     Active Substance: CLONIDINE
     Indication: Hypertension
  2. CLONIDINE [Suspect]
     Active Substance: CLONIDINE
     Route: 065
  3. CLONIDINE [Suspect]
     Active Substance: CLONIDINE
     Route: 065
  4. CLONIDINE [Suspect]
     Active Substance: CLONIDINE

REACTIONS (2)
  - Thirst [Unknown]
  - Dry mouth [Unknown]
